FAERS Safety Report 6558362-5 (Version None)
Quarter: 2010Q1

REPORT INFORMATION
  Report Type: 
  Country: None (occurrence: None)
  Receive Date: 20100129
  Receipt Date: 20100121
  Transmission Date: 20100710
  Serious: Yes (Hospitalization)
  Sender: FDA-Public Use
  Company Number: JP-MERCK-1001USA03075

PATIENT
  Age: 55 Year
  Sex: Female

DRUGS (5)
  1. HYZAAR [Suspect]
     Indication: HYPERTENSION
     Route: 048
     Dates: start: 20080509, end: 20091222
  2. HYZAAR [Suspect]
     Route: 048
     Dates: start: 20100101
  3. MEVALOTIN [Concomitant]
     Route: 065
  4. ALLOPURINOL [Concomitant]
     Route: 065
  5. ADALAT CC [Concomitant]
     Route: 065

REACTIONS (1)
  - PSEUDOALDOSTERONISM [None]
